FAERS Safety Report 8971718 (Version 1)
Quarter: 2012Q4

REPORT INFORMATION
  Report Type: 
  Country: FR (occurrence: FR)
  Receive Date: 20121217
  Receipt Date: 20121217
  Transmission Date: 20130627
  Serious: Yes (Death, Congenital Anomaly)
  Sender: FDA-Public Use
  Company Number: FR-ASTRAZENECA-2012SE92825

PATIENT
  Age: 0 Week
  Sex: Male

DRUGS (2)
  1. ZOMIG [Suspect]
     Indication: MIGRAINE
     Dosage: THREE OR FOUR INTAKE IN A MONTH
     Route: 064
     Dates: start: 201112, end: 201201
  2. BIPROFENID [Suspect]
     Indication: MIGRAINE
     Route: 064
     Dates: start: 201112, end: 201201

REACTIONS (2)
  - Foetal malformation [Fatal]
  - Foetal death [Fatal]
